FAERS Safety Report 6269155-0 (Version None)
Quarter: 2009Q3

REPORT INFORMATION
  Report Type: 
  Country: None (occurrence: None)
  Receive Date: 20090713
  Receipt Date: 20090629
  Transmission Date: 20100115
  Serious: Yes (Hospitalization)
  Sender: FDA-Public Use
  Company Number: DE-1170150

PATIENT

DRUGS (1)
  1. FLUORESCIN SODIUM (10% INJECTION SOLUTION FOR INJECTION [Suspect]
     Route: 040

REACTIONS (1)
  - MYOCARDIAL INFARCTION [None]
